FAERS Safety Report 7718144-5 (Version None)
Quarter: 2011Q3

REPORT INFORMATION
  Report Type: 
  Country: None (occurrence: None)
  Receive Date: 20110830
  Receipt Date: 20110825
  Transmission Date: 20111222
  Serious: Yes (Other)
  Sender: FDA-Public Use
  Company Number: US-ROCHE-798716

PATIENT
  Sex: Female

DRUGS (2)
  1. BONIVA [Suspect]
     Indication: OSTEOPOROSIS
     Route: 065
     Dates: start: 20060101, end: 20100101
  2. FOSAMAX [Suspect]
     Indication: OSTEOPOROSIS
     Route: 065
     Dates: start: 20000101, end: 20060101

REACTIONS (4)
  - ANXIETY [None]
  - EMOTIONAL DISTRESS [None]
  - LOW TURNOVER OSTEOPATHY [None]
  - FEMUR FRACTURE [None]
